FAERS Safety Report 11701227 (Version 1)
Quarter: 2015Q4

REPORT INFORMATION
  Report Type: Spontaneous
  Country: TR (occurrence: TR)
  Receive Date: 20151105
  Receipt Date: 20151105
  Transmission Date: 20160304
  Serious: Yes (Other)
  Sender: FDA-Public Use
  Company Number: TR-MYLANLABS-2015M1037756

PATIENT

DRUGS (2)
  1. BUPIVACAINE [Suspect]
     Active Substance: BUPIVACAINE
     Indication: NERVE BLOCK
     Dosage: 20 ML OF 100MG BUPIVACAINE (5%)
     Route: 050
  2. LIDOCAINE HYDROCHLORIDE. [Suspect]
     Active Substance: LIDOCAINE HYDROCHLORIDE
     Indication: NERVE BLOCK
     Dosage: 10 ML OF 200 MG LIDOCAINE (2%)
     Route: 050

REACTIONS (1)
  - Nerve injury [Recovered/Resolved]
